FAERS Safety Report 24674971 (Version 2)
Quarter: 2024Q4

REPORT INFORMATION
  Report Type: Spontaneous
  Country: CZ (occurrence: CZ)
  Receive Date: 20241128
  Receipt Date: 20241223
  Transmission Date: 20250115
  Serious: Yes (Hospitalization, Other)
  Sender: BAXTER
  Company Number: CZ-EMA-20241116-AUTODUP-1731719745633

PATIENT
  Age: 40 Year
  Sex: Male

DRUGS (7)
  1. CYCLOPHOSPHAMIDE [Suspect]
     Active Substance: CYCLOPHOSPHAMIDE
     Indication: Prophylaxis against graft versus host disease
     Dosage: HIGH-DOSE
     Route: 065
  2. FLUDARABINE PHOSPHATE [Suspect]
     Active Substance: FLUDARABINE PHOSPHATE
     Indication: Bone marrow conditioning regimen
     Dosage: UNK
     Route: 065
  3. FLUDARABINE PHOSPHATE [Suspect]
     Active Substance: FLUDARABINE PHOSPHATE
     Indication: Chronic myelomonocytic leukaemia
  4. BUSULFAN [Suspect]
     Active Substance: BUSULFAN
     Indication: Bone marrow conditioning regimen
     Dosage: UNK
     Route: 065
  5. BUSULFAN [Suspect]
     Active Substance: BUSULFAN
     Indication: Chronic myelomonocytic leukaemia
  6. CYCLOSPORINE [Suspect]
     Active Substance: CYCLOSPORINE
     Indication: Prophylaxis against graft versus host disease
     Dosage: UNK
     Route: 065
  7. MYCOPHENOLIC ACID [Suspect]
     Active Substance: MYCOPHENOLIC ACID
     Indication: Prophylaxis against graft versus host disease
     Dosage: UNK
     Route: 065

REACTIONS (15)
  - Coagulopathy [Recovering/Resolving]
  - Disease progression [Recovering/Resolving]
  - Off label use [Recovering/Resolving]
  - Venoocclusive liver disease [Recovering/Resolving]
  - Hyperbilirubinaemia [Recovering/Resolving]
  - Fluid retention [Recovering/Resolving]
  - Thrombocytopenia [Recovering/Resolving]
  - Multiple organ dysfunction syndrome [Recovering/Resolving]
  - Respiratory failure [Recovering/Resolving]
  - Klebsiella infection [Recovering/Resolving]
  - Arrhythmia [Recovering/Resolving]
  - Stomatitis [Recovering/Resolving]
  - Jaundice [Recovering/Resolving]
  - General physical health deterioration [Recovering/Resolving]
  - Atrial tachycardia [Recovering/Resolving]
